FAERS Safety Report 4976925-5 (Version None)
Quarter: 2006Q2

REPORT INFORMATION
  Report Type: 
  Country: None (occurrence: None)
  Receive Date: 20060419
  Receipt Date: 20060410
  Transmission Date: 20061013
  Serious: Yes (Hospitalization)
  Sender: FDA-Public Use
  Company Number: GB-JNJFOC-20041007036

PATIENT
  Sex: Male

DRUGS (11)
  1. REMICADE [Suspect]
     Indication: DRUG USE FOR UNKNOWN INDICATION
     Route: 042
  2. ATENOLOL [Concomitant]
  3. AMITRIPTYLINE HCL [Concomitant]
  4. COMBIVENT [Concomitant]
  5. COMBIVENT [Concomitant]
  6. OMEPRAZOLE [Concomitant]
  7. ATORVASTATIN CALCIUM [Concomitant]
  8. ALLOPURINOL [Concomitant]
  9. DOXAZOSIN [Concomitant]
  10. INDOMETHACIN [Concomitant]
  11. RISEDRONATE [Concomitant]

REACTIONS (1)
  - LISTERIOSIS [None]
